FAERS Safety Report 11095433 (Version 2)
Quarter: 2015Q2

REPORT INFORMATION
  Report Type: Spontaneous
  Country: GB (occurrence: GB)
  Receive Date: 20150506
  Receipt Date: 20150514
  Transmission Date: 20150821
  Serious: Yes (Death)
  Sender: FDA-Public Use
  Company Number: GB-PFIZER INC-GBWYE114015OCT04

PATIENT
  Age: 21 Year
  Sex: Female

DRUGS (5)
  1. ZOLPIDEM TARTRATE. [Suspect]
     Active Substance: ZOLPIDEM TARTRATE
     Dosage: UNK
  2. MIRTAZAPINE. [Suspect]
     Active Substance: MIRTAZAPINE
     Dosage: UNK
  3. DEXTROPROPOXYPHENE [Suspect]
     Active Substance: PROPOXYPHENE HYDROCHLORIDE
     Dosage: UNK
  4. ANADIN PARACETAMOL [Suspect]
     Active Substance: ACETAMINOPHEN
     Dosage: UNK
  5. EFFEXOR [Suspect]
     Active Substance: VENLAFAXINE HYDROCHLORIDE
     Dosage: UNK

REACTIONS (2)
  - Overdose [Fatal]
  - Sudden death [Fatal]
